FAERS Safety Report 4928842-4 (Version None)
Quarter: 2006Q1

REPORT INFORMATION
  Report Type: 
  Country: None (occurrence: None)
  Receive Date: 20060301
  Receipt Date: 20060217
  Transmission Date: 20060701
  Serious: Yes (Death, Life-Threatening)
  Sender: FDA-Public Use
  Company Number: FR-BRISTOL-MYERS SQUIBB COMPANY-13288519

PATIENT
  Age: 45 Year
  Sex: Male

DRUGS (6)
  1. REYATAZ [Suspect]
     Indication: HIV INFECTION
     Route: 048
     Dates: start: 20050908, end: 20051107
  2. ELISOR TABS 20 MG [Suspect]
     Indication: HYPERTENSION
     Route: 048
     Dates: end: 20051107
  3. NORVIR [Suspect]
     Indication: HIV INFECTION
     Dates: start: 20050908
  4. VIREAD [Suspect]
     Indication: HIV INFECTION
     Dates: start: 20050908
  5. EMTRIVA [Suspect]
     Indication: HIV INFECTION
     Dates: start: 20050908
  6. BACTRIM [Suspect]
     Indication: HIV INFECTION
     Dates: start: 20050908

REACTIONS (2)
  - HEPATIC FAILURE [None]
  - HEPATOCELLULAR DAMAGE [None]
